FAERS Safety Report 10485073 (Version 2)
Quarter: 2014Q4

REPORT INFORMATION
  Report Type: Spontaneous
  Country: GB (occurrence: GB)
  Receive Date: 20140930
  Receipt Date: 20141013
  Transmission Date: 20150528
  Serious: No
  Sender: FDA-Public Use
  Company Number: GB-BAYER-2014-143918

PATIENT
  Sex: Female

DRUGS (1)
  1. CANESTEN COMBI 500MG PESSARY + 2% CREAM [Suspect]
     Active Substance: CLOTRIMAZOLE\HYDROCORTISONE
     Dosage: UNK
     Dates: start: 20140923

REACTIONS (2)
  - Diarrhoea [None]
  - Vaginal haemorrhage [None]

NARRATIVE: CASE EVENT DATE: 20140924
